FAERS Safety Report 7782267-5 (Version None)
Quarter: 2011Q3

REPORT INFORMATION
  Report Type: 
  Country: None (occurrence: None)
  Receive Date: 20110927
  Receipt Date: 20110926
  Transmission Date: 20111222
  Serious: Yes (Hospitalization)
  Sender: FDA-Public Use
  Company Number: BR-ABBOTT-11P-020-0855118-00

PATIENT
  Sex: Male
  Weight: 7.48 kg

DRUGS (1)
  1. DEPAKENE [Suspect]
     Indication: CONVULSION
     Route: 048

REACTIONS (7)
  - VOMITING [None]
  - CRYING [None]
  - EYE DISORDER [None]
  - BLOOD GLUCOSE DECREASED [None]
  - NERVOUSNESS [None]
  - DIARRHOEA [None]
  - ASTHENIA [None]
